FAERS Safety Report 9119340 (Version 1)
Quarter: 2013Q1

REPORT INFORMATION
  Report Type: Spontaneous
  Country: US (occurrence: US)
  Receive Date: 20130207
  Receipt Date: 20130207
  Transmission Date: 20140127
  Serious: Yes (Other)
  Sender: FDA-Public Use
  Company Number: US-RB-010278-10

PATIENT
  Age: 31 Year
  Sex: Female

DRUGS (10)
  1. SUBOXONE [Suspect]
     Route: 060
     Dates: start: 200810, end: 200811
  2. SUBOXONE [Suspect]
     Indication: DRUG DEPENDENCE
     Route: 060
     Dates: start: 200811, end: 200903
  3. SUBOXONE [Suspect]
     Route: 060
     Dates: start: 200903, end: 200904
  4. SUBOXONE [Suspect]
     Route: 060
     Dates: start: 200904
  5. SUBOXONE [Suspect]
     Route: 060
     Dates: start: 2009, end: 201001
  6. SUBOXONE [Suspect]
     Route: 060
     Dates: start: 201010
  7. SUBUTEX [Suspect]
     Route: 060
     Dates: start: 201001, end: 201001
  8. SUBUTEX [Suspect]
     Indication: DRUG DEPENDENCE
     Route: 060
     Dates: start: 201001, end: 201010
  9. TEGRETOL [Suspect]
     Indication: CONVULSION
     Dosage: DOSING DETAILS UNKNOWN
  10. XANAX [Suspect]
     Indication: ANXIETY
     Dosage: DOSING DETAILS UNKNOWN

REACTIONS (4)
  - Exposure during pregnancy [Recovered/Resolved]
  - Drug withdrawal syndrome [Recovered/Resolved]
  - Drug dependence [Recovered/Resolved]
  - Premature delivery [Recovered/Resolved]
